FAERS Safety Report 7643442-3 (Version None)
Quarter: 2011Q3

REPORT INFORMATION
  Report Type: 
  Country: None (occurrence: None)
  Receive Date: 20110729
  Receipt Date: 20110722
  Transmission Date: 20111222
  Serious: Yes (Death)
  Sender: FDA-Public Use
  Company Number: US-TEVA-292215USA

PATIENT
  Sex: Male

DRUGS (1)
  1. RIBAVIRIN [Suspect]
     Indication: HEPATITIS
     Dosage: 600MG IN MORNING, 400MG IN EVENING
     Dates: start: 20110623, end: 20110715

REACTIONS (1)
  - SUDDEN DEATH [None]
